FAERS Safety Report 23528954 (Version 1)
Quarter: 2024Q1

REPORT INFORMATION
  Report Type: Spontaneous
  Country: AU (occurrence: AU)
  Receive Date: 20240215
  Receipt Date: 20240215
  Transmission Date: 20240409
  Serious: Yes (Other)
  Sender: FDA-Public Use
  Company Number: AU-CIPLA LTD.-2024AU01765

PATIENT

DRUGS (4)
  1. BLEOMYCIN SULFATE [Suspect]
     Active Substance: BLEOMYCIN SULFATE
     Indication: Hodgkin^s disease mixed cellularity stage IV
     Dosage: UNK, ABVD REGIMEN X 6 CYCLES FOR 12 DOSES
     Route: 065
  2. DACARBAZINE [Suspect]
     Active Substance: DACARBAZINE
     Indication: Hodgkin^s disease mixed cellularity stage IV
     Dosage: UNK, ABVD REGIMEN X 6 CYCLES FOR 12 DOSES
     Route: 065
  3. DOXORUBICIN HYDROCHLORIDE [Suspect]
     Active Substance: DOXORUBICIN HYDROCHLORIDE
     Indication: Hodgkin^s disease mixed cellularity stage IV
     Dosage: UNK, ABVD REGIMEN X 6 CYCLES FOR 12 DOSES
     Route: 065
  4. VINBLASTINE SULFATE [Suspect]
     Active Substance: VINBLASTINE SULFATE
     Indication: Hodgkin^s disease mixed cellularity stage IV
     Dosage: UNK, ABVD REGIMEN X 6 CYCLES FOR 12 DOSES
     Route: 065

REACTIONS (3)
  - Hodgkin^s disease [Unknown]
  - Hodgkin^s disease mixed cellularity stage unspecified [Unknown]
  - Pulmonary toxicity [Unknown]
